FAERS Safety Report 15454170 (Version 1)
Quarter: 2018Q4

REPORT INFORMATION
  Report Type: Spontaneous
  Country: US (occurrence: US)
  Receive Date: 20181002
  Receipt Date: 20181002
  Transmission Date: 20190204
  Serious: Yes (Hospitalization, Other)
  Sender: FDA-Public Use
  Company Number: US-UNICHEM PHARMACEUTICALS (USA) INC-UCM201809-000235

PATIENT
  Age: 25 Year
  Sex: Female
  Weight: 111 kg

DRUGS (2)
  1. LAMOTRIGINE. [Suspect]
     Active Substance: LAMOTRIGINE
  2. ESCITALOPRAM [Suspect]
     Active Substance: ESCITALOPRAM OXALATE

REACTIONS (15)
  - Pneumonia aspiration [Recovered/Resolved]
  - Overdose [Unknown]
  - Endotracheal intubation [Recovered/Resolved]
  - Rhabdomyolysis [Recovered/Resolved]
  - Acute respiratory distress syndrome [Recovered/Resolved]
  - Agitation [Recovered/Resolved]
  - Bundle branch block left [Recovered/Resolved]
  - Somnolence [Recovered/Resolved]
  - Hypotension [Recovered/Resolved]
  - Tachycardia [Recovered/Resolved]
  - Toxicity to various agents [Recovered/Resolved]
  - Serotonin syndrome [Recovered/Resolved]
  - Electrocardiogram QRS complex prolonged [Recovered/Resolved]
  - Decreased immune responsiveness [Recovered/Resolved]
  - Unresponsive to stimuli [Recovered/Resolved]
